FAERS Safety Report 9341206 (Version 1)
Quarter: 2013Q2

REPORT INFORMATION
  Report Type: Report from Study
  Country: US (occurrence: US)
  Receive Date: 20130611
  Receipt Date: 20130611
  Transmission Date: 20140414
  Serious: Yes (Other)
  Sender: FDA-Public Use
  Company Number: US-ROCHE-1231432

PATIENT
  Age: 62 Year
  Sex: Male
  Weight: 65.83 kg

DRUGS (6)
  1. ACTEMRA [Suspect]
     Indication: RHEUMATOID ARTHRITIS
     Route: 042
     Dates: start: 201211
  2. ACTEMRA [Suspect]
     Route: 042
     Dates: start: 20130219
  3. ACTEMRA [Suspect]
     Route: 042
     Dates: start: 20130319
  4. ACTEMRA [Suspect]
     Route: 042
     Dates: start: 20130419
  5. ACTEMRA [Suspect]
     Route: 042
     Dates: start: 20130519
  6. PLAVIX [Concomitant]
     Dosage: QD
     Route: 048

REACTIONS (3)
  - Aspartate aminotransferase abnormal [Not Recovered/Not Resolved]
  - Haematochezia [Not Recovered/Not Resolved]
  - Therapeutic response decreased [Recovering/Resolving]
